FAERS Safety Report 8352380-2 (Version None)
Quarter: 2012Q2

REPORT INFORMATION
  Report Type: 
  Country: None (occurrence: None)
  Receive Date: 20120509
  Receipt Date: 20120430
  Transmission Date: 20120825
  Serious: No
  Sender: FDA-Public Use
  Company Number: AUR-APL-2011-04901

PATIENT
  Sex: Female
  Weight: 54.4316 kg

DRUGS (6)
  1. VANCOCIN (VANCOMYCIN HYDROCHLORIDE) [Concomitant]
  2. SIMVASTATIN [Concomitant]
  3. LISINOPRIL [Concomitant]
  4. FUROSEMIDE [Concomitant]
  5. ZOLPIDEM [Suspect]
     Indication: INSOMNIA
     Dosage: 1 DOSAGE FORMS, AT BEDTIME, PER ORAL
     Route: 048
  6. METOPROLOL TARTRATE [Concomitant]

REACTIONS (4)
  - PRODUCT SUBSTITUTION ISSUE [None]
  - PRODUCT QUALITY ISSUE [None]
  - MIDDLE INSOMNIA [None]
  - SLEEP DISORDER [None]
